FAERS Safety Report 17071950 (Version 1)
Quarter: 2019Q4

REPORT INFORMATION
  Report Type: Spontaneous
  Country: BG (occurrence: BG)
  Receive Date: 20191125
  Receipt Date: 20191125
  Transmission Date: 20200122
  Serious: Yes (Hospitalization)
  Sender: FDA-Public Use
  Company Number: BG-ASTRAZENECA-2019SF65335

PATIENT
  Age: 74 Year
  Sex: Female
  Weight: 66 kg

DRUGS (7)
  1. BRILIQUE [Suspect]
     Active Substance: TICAGRELOR
     Route: 048
  2. ASPIRIN. [Concomitant]
     Active Substance: ASPIRIN
  3. AMLODIPINE [Concomitant]
     Active Substance: AMLODIPINE BESYLATE
  4. MOLSIDOMIN [Concomitant]
     Active Substance: MOLSIDOMINE
  5. NEBIVOLOL. [Concomitant]
     Active Substance: NEBIVOLOL
  6. ROSUVASTATIN. [Concomitant]
     Active Substance: ROSUVASTATIN
  7. RAMIPRIL. [Concomitant]
     Active Substance: RAMIPRIL

REACTIONS (4)
  - Angina pectoris [Unknown]
  - General physical condition abnormal [Unknown]
  - Epigastric discomfort [Unknown]
  - Chest discomfort [Unknown]
